FAERS Safety Report 24625010 (Version 1)
Quarter: 2024Q4

REPORT INFORMATION
  Report Type: Report from Study
  Country: US (occurrence: US)
  Receive Date: 20241115
  Receipt Date: 20241115
  Transmission Date: 20250114
  Serious: Yes (Other)
  Sender: ABBVIE
  Company Number: US-ABBVIE-5680158

PATIENT
  Sex: Male

DRUGS (2)
  1. HUMIRA [Suspect]
     Active Substance: ADALIMUMAB
     Indication: Crohn^s disease
     Route: 058
     Dates: start: 20140311
  2. HUMIRA [Suspect]
     Active Substance: ADALIMUMAB
     Dosage: END DATE: MAR 2014
     Route: 058
     Dates: start: 20140310

REACTIONS (2)
  - Hernia [Recovered/Resolved]
  - Arthralgia [Recovering/Resolving]
